FAERS Safety Report 9773769 (Version 2)
Quarter: 2014Q1

REPORT INFORMATION
  Report Type: Report from Study
  Country: DE (occurrence: DE)
  Receive Date: 20131219
  Receipt Date: 20140306
  Transmission Date: 20141002
  Serious: Yes (Other)
  Sender: FDA-Public Use
  Company Number: DE-ROCHE-1322747

PATIENT
  Sex: 0

DRUGS (2)
  1. NAPROXEN [Suspect]
     Indication: SPONDYLITIS
     Dosage: AT WEEKS 0, 2, 6, 12, 18 AND 24
     Route: 048
  2. INFLIXIMAB [Suspect]
     Indication: SPONDYLITIS
     Dosage: AT WEEKS 0, 2, 6, 12, 18 AND 24
     Route: 042

REACTIONS (3)
  - Chest discomfort [Unknown]
  - Dizziness [Unknown]
  - Dyspnoea [Unknown]
